FAERS Safety Report 16185129 (Version 1)
Quarter: 2019Q2

REPORT INFORMATION
  Report Type: Spontaneous
  Country: US (occurrence: US)
  Receive Date: 20190411
  Receipt Date: 20190411
  Transmission Date: 20190711
  Serious: No
  Sender: FDA-Public Use
  Company Number: US-PFIZER INC-2019150856

PATIENT
  Age: 45 Year
  Sex: Female
  Weight: 61.22 kg

DRUGS (1)
  1. LYRICA [Suspect]
     Active Substance: PREGABALIN
     Indication: TRIGEMINAL NEURALGIA
     Dosage: 150 MG, 2X/DAY (ONLY TOOK IT ONCE SO FAR)
     Dates: start: 20190403, end: 20190403

REACTIONS (3)
  - Confusional state [Unknown]
  - Dizziness [Unknown]
  - Restlessness [Unknown]

NARRATIVE: CASE EVENT DATE: 20190403
